FAERS Safety Report 8384395-2 (Version None)
Quarter: 2012Q2

REPORT INFORMATION
  Report Type: 
  Country: None (occurrence: None)
  Receive Date: 20120524
  Receipt Date: 20120517
  Transmission Date: 20120825
  Serious: Yes (Death)
  Sender: FDA-Public Use
  Company Number: US-GLAXOSMITHKLINE-A0898421A

PATIENT
  Age: 45 Year
  Sex: Female
  Weight: 93.6 kg

DRUGS (4)
  1. AMARYL [Concomitant]
     Dosage: 4MG PER DAY
     Dates: start: 20050322
  2. AVANDAMET [Suspect]
     Indication: DIABETES MELLITUS
     Dosage: 1TAB TWICE PER DAY
     Route: 048
     Dates: start: 20050310
  3. AVANDIA [Suspect]
     Indication: DIABETES MELLITUS
     Route: 048
  4. ZESTRIL [Concomitant]

REACTIONS (2)
  - CARDIAC FAILURE CONGESTIVE [None]
  - CARDIOVASCULAR DISORDER [None]
